FAERS Safety Report 6945260-8 (Version None)
Quarter: 2010Q3

REPORT INFORMATION
  Report Type: 
  Country: None (occurrence: None)
  Receive Date: 20100827
  Receipt Date: 20100713
  Transmission Date: 20110219
  Serious: No
  Sender: FDA-Public Use
  Company Number: US-KINGPHARMUSA00001-K201000882

PATIENT
  Age: 78 Year
  Sex: Female
  Weight: 71.655 kg

DRUGS (9)
  1. FLECTOR [Suspect]
     Indication: ARTHRITIS
     Dosage: 1 PATCH, SINGLE, UNK
     Dates: start: 20100713, end: 20100713
  2. LISINOPRIL [Concomitant]
     Dosage: 80 MG, QD
  3. EXFORGE [Concomitant]
     Dosage: 5 MG/320 MG, UNK
  4. PLAVIX [Concomitant]
     Dosage: 75 MG, UNK
  5. THIORIDAZINE HYDROCHLORIDE [Concomitant]
     Dosage: 50 MG, UNK
     Dates: start: 19720101
  6. ZOCOR [Concomitant]
     Dosage: 20 MG, UNK
  7. CELEXA [Concomitant]
     Dosage: 10 MG, UNK
  8. SYNTHROID [Concomitant]
     Dosage: 100 MCG, UNK
  9. NEXIUM [Concomitant]
     Dosage: 40 MG, UNK

REACTIONS (2)
  - DYSPNOEA [None]
  - THROAT TIGHTNESS [None]
